FAERS Safety Report 10623411 (Version 2)
Quarter: 2014Q4

REPORT INFORMATION
  Report Type: Spontaneous
  Country: US (occurrence: US)
  Receive Date: 20141203
  Receipt Date: 20141226
  Transmission Date: 20150529
  Serious: Yes (Hospitalization)
  Sender: FDA-Public Use
  Company Number: US-BAYER-2014-178323

PATIENT
  Age: 29 Year
  Sex: Female
  Weight: 72.56 kg

DRUGS (1)
  1. MIRENA [Suspect]
     Active Substance: LEVONORGESTREL
     Indication: CONTRACEPTION
     Dosage: 20 MCG/24HR, CONT
     Route: 015
     Dates: start: 20130513, end: 20130725

REACTIONS (7)
  - Injury [None]
  - Emotional distress [None]
  - Anxiety [None]
  - Device dislocation [None]
  - Device dislocation [None]
  - Activities of daily living impaired [None]
  - Pain [None]

NARRATIVE: CASE EVENT DATE: 20130725
